FAERS Safety Report 9412801 (Version 1)
Quarter: 2013Q3

REPORT INFORMATION
  Report Type: Spontaneous
  Country: US (occurrence: US)
  Receive Date: 20130722
  Receipt Date: 20130722
  Transmission Date: 20140515
  Serious: No
  Sender: FDA-Public Use
  Company Number: US-BAYER-2013-088183

PATIENT
  Age: 62 Year
  Sex: Female

DRUGS (3)
  1. CIPRO [Suspect]
     Indication: DIVERTICULITIS
     Dosage: UNK
     Dates: start: 20130521
  2. FLAGYL [Suspect]
     Indication: DIVERTICULITIS
     Dosage: UNK
     Dates: start: 20130521
  3. PRILOSEC [Suspect]
     Indication: DIVERTICULITIS
     Dosage: UNK
     Dates: start: 20130521

REACTIONS (4)
  - Constipation [Recovering/Resolving]
  - Nausea [Recovering/Resolving]
  - Vomiting [Recovering/Resolving]
  - Diarrhoea [Recovering/Resolving]
